FAERS Safety Report 8342202-8 (Version None)
Quarter: 2012Q2

REPORT INFORMATION
  Report Type: 
  Country: None (occurrence: None)
  Receive Date: 20120507
  Receipt Date: 20120423
  Transmission Date: 20120825
  Serious: Yes (Other)
  Sender: FDA-Public Use
  Company Number: BR-AMGEN-US427949

PATIENT
  Age: 48 Year
  Sex: Female

DRUGS (10)
  1. LYRICA [Concomitant]
     Indication: PAIN
     Dosage: UNK
  2. FOLIC ACID [Concomitant]
     Dosage: UNK
  3. ENBREL [Suspect]
     Dosage: 25 MG
     Route: 058
  4. VITAMIN B1 TAB [Concomitant]
     Dosage: UNK
  5. ENBREL [Suspect]
     Indication: RHEUMATOID ARTHRITIS
     Dosage: 50 MG, ONCE WEEKLY
     Route: 058
  6. CYCLOBENZAPRINE [Concomitant]
     Dosage: UNK
  7. PRISTIQ [Concomitant]
     Route: 048
  8. GABAPENTIN [Concomitant]
     Dosage: UNK
  9. CLONAZEPAM [Concomitant]
     Dosage: 4 MG, QD
     Dates: end: 20100101
  10. METHOTREXATE [Concomitant]
     Dosage: UNK

REACTIONS (13)
  - PAIN [None]
  - BACK PAIN [None]
  - EMOTIONAL DISORDER [None]
  - MUSCULOSKELETAL PAIN [None]
  - WALKING AID USER [None]
  - ARTHRALGIA [None]
  - PAIN IN EXTREMITY [None]
  - WRONG TECHNIQUE IN DRUG USAGE PROCESS [None]
  - PANIC ATTACK [None]
  - RHEUMATOID ARTHRITIS [None]
  - DECREASED IMMUNE RESPONSIVENESS [None]
  - SINUSITIS [None]
  - INJECTION SITE PAIN [None]
